FAERS Safety Report 8360243-1 (Version None)
Quarter: 2012Q2

REPORT INFORMATION
  Report Type: 
  Country: None (occurrence: None)
  Receive Date: 20120515
  Receipt Date: 20120507
  Transmission Date: 20120825
  Serious: Yes (Other)
  Sender: FDA-Public Use
  Company Number: US-BAYER-2012-045155

PATIENT
  Sex: Female

DRUGS (7)
  1. YAZ [Suspect]
     Indication: CONTRACEPTION
     Route: 048
  2. YAZ [Suspect]
     Indication: MENSTRUAL DISORDER
  3. BEYAZ [Suspect]
     Indication: CONTRACEPTION
     Route: 048
  4. ZINC OXID [Concomitant]
  5. ASCORBIC ACID [Concomitant]
     Dosage: UNK
  6. MAGNESIUM [Concomitant]
  7. BEYAZ [Suspect]
     Indication: MENSTRUAL DISORDER

REACTIONS (1)
  - BLOOD COPPER INCREASED [None]
